FAERS Safety Report 6890211-8 (Version None)
Quarter: 2010Q3

REPORT INFORMATION
  Report Type: 
  Country: None (occurrence: None)
  Receive Date: 20100730
  Receipt Date: 20080906
  Transmission Date: 20110219
  Serious: No
  Sender: FDA-Public Use
  Company Number: US-PFIZER INC-2008054021

PATIENT
  Sex: Female
  Weight: 68.04 kg

DRUGS (7)
  1. LIPITOR [Suspect]
     Dates: end: 20080616
  2. COUMADIN [Concomitant]
  3. SYNTHROID [Concomitant]
  4. LASIX [Concomitant]
  5. NORVASC [Concomitant]
  6. PROTONIX [Concomitant]
  7. ALDACTONE [Concomitant]

REACTIONS (2)
  - MEDICATION ERROR [None]
  - MUSCLE SPASMS [None]
